FAERS Safety Report 11731571 (Version 1)
Quarter: 2015Q4

REPORT INFORMATION
  Report Type: Spontaneous
  Country: US (occurrence: US)
  Receive Date: 20151110
  Receipt Date: 20151110
  Transmission Date: 20160304
  Serious: No
  Sender: FDA-Public Use
  Company Number: US-ELI_LILLY_AND_COMPANY-US201201002240

PATIENT
  Sex: Female

DRUGS (3)
  1. CALCIUM [Concomitant]
     Active Substance: CALCIUM
     Indication: BLOOD CALCIUM DECREASED
     Dosage: 1200 MG, BID
  2. FORTEO [Suspect]
     Active Substance: TERIPARATIDE
     Dosage: 20 UG, QOD
     Dates: start: 20120229, end: 20120310
  3. FORTEO [Suspect]
     Active Substance: TERIPARATIDE
     Indication: OSTEOPOROSIS
     Dosage: 20 UG, QD

REACTIONS (13)
  - Feeling abnormal [Recovered/Resolved]
  - Ear infection [Recovering/Resolving]
  - Alopecia [Not Recovered/Not Resolved]
  - Balance disorder [Unknown]
  - Blood calcium decreased [Unknown]
  - Feeling abnormal [Unknown]
  - Sinusitis [Recovering/Resolving]
  - Asthenia [Unknown]
  - Head discomfort [Unknown]
  - Drug hypersensitivity [Unknown]
  - Malaise [Unknown]
  - Nausea [Unknown]
  - Intentional product misuse [Unknown]
